FAERS Safety Report 16689009 (Version 4)
Quarter: 2019Q3

REPORT INFORMATION
  Report Type: Spontaneous
  Country: AU (occurrence: AU)
  Receive Date: 20190809
  Receipt Date: 20190910
  Transmission Date: 20191004
  Serious: Yes (Hospitalization)
  Sender: FDA-Public Use
  Company Number: AU-APOTEX-2019AP019488

PATIENT
  Age: 85 Year
  Sex: Female

DRUGS (2)
  1. ATORVASTATIN [Concomitant]
     Active Substance: ATORVASTATIN
     Indication: PRODUCT USED FOR UNKNOWN INDICATION
     Dosage: UNK
     Route: 065
  2. APOHEALTH OSTEO RELIEF PARACETAMOL [Suspect]
     Active Substance: ACETAMINOPHEN
     Indication: ANALGESIC THERAPY
     Dosage: UNK
     Route: 048

REACTIONS (4)
  - Dysphagia [Recovered/Resolved]
  - Product coating issue [Unknown]
  - Throat irritation [Recovered/Resolved]
  - Oesophageal irritation [Recovered/Resolved]
